FAERS Safety Report 8786589 (Version 1)
Quarter: 2012Q4

REPORT INFORMATION
  Report Type: 
  Country: US (occurrence: US)
  Receive Date: 20120914
  Receipt Date: 20120914
  Transmission Date: 20130627
  Serious: Yes (Hospitalization)
  Sender: FDA-Public Use
  Company Number: GXBR2012US001874

PATIENT
  Sex: Female

DRUGS (3)
  1. AMITRIPTYLINE HCL TABLETS USP [Suspect]
     Dosage: 10 mg, 1 to 2 tablets qhs
     Route: 048
  2. SERTRALINE [Suspect]
     Dosage: UNK DF, UNK
  3. LAMOTRIGINE [Suspect]
     Dosage: UNK DF, UNK

REACTIONS (2)
  - Intestinal obstruction [Unknown]
  - Coeliac disease [None]
